FAERS Safety Report 20290519 (Version 1)
Quarter: 2022Q1

REPORT INFORMATION
  Report Type: Report from Study
  Country: CA (occurrence: CA)
  Receive Date: 20220104
  Receipt Date: 20220104
  Transmission Date: 20220423
  Serious: Yes (Hospitalization, Other)
  Sender: FDA-Public Use
  Company Number: None

PATIENT
  Age: 72 Year
  Sex: Male

DRUGS (3)
  1. AMLODIPINE [Suspect]
     Active Substance: AMLODIPINE BESYLATE
     Indication: Blood pressure increased
  2. SANDOSTATIN [Suspect]
     Active Substance: OCTREOTIDE ACETATE
     Indication: Neuroendocrine tumour
  3. RAMIPRIL [Concomitant]
     Active Substance: RAMIPRIL
     Route: 048

REACTIONS (18)
  - Abdominal distension [Recovered/Resolved]
  - Abdominal pain [Recovered/Resolved]
  - Blood pressure diastolic decreased [Recovered/Resolved]
  - Blood pressure systolic increased [Recovered/Resolved]
  - Bowel movement irregularity [Recovered/Resolved]
  - Dysuria [Recovered/Resolved]
  - Flatulence [Recovered/Resolved]
  - Intestinal obstruction [Recovered/Resolved]
  - Malignant neoplasm progression [Recovered/Resolved]
  - Metastases to liver [Recovered/Resolved]
  - Nausea [Recovered/Resolved]
  - Pulse abnormal [Recovered/Resolved]
  - Scar [Recovered/Resolved]
  - Second primary malignancy [Recovered/Resolved]
  - Skin disorder [Recovered/Resolved]
  - Squamous cell carcinoma [Recovered/Resolved]
  - Urinary retention [Recovered/Resolved]
  - Vomiting [Recovered/Resolved]
